FAERS Safety Report 8356075-0 (Version None)
Quarter: 2012Q2

REPORT INFORMATION
  Report Type: 
  Country: None (occurrence: None)
  Receive Date: 20120514
  Receipt Date: 20120502
  Transmission Date: 20120825
  Serious: No
  Sender: FDA-Public Use
  Company Number: US-ROXANE LABORATORIES, INC.-2012-RO-01183RO

PATIENT
  Sex: Male

DRUGS (6)
  1. BUPRENORPHINE HCL [Suspect]
     Dosage: 4 MG
     Route: 060
     Dates: start: 20120430
  2. AZOR [Concomitant]
     Dosage: 5 MG
  3. CRESTOR [Concomitant]
     Dosage: 10 MG
  4. BUPRENORPHINE HCL [Suspect]
     Indication: DRUG DEPENDENCE
     Dosage: 8 MG
     Route: 060
     Dates: start: 20120302
  5. POTASSIUM CHLORIDE [Concomitant]
     Dosage: 20 MG
  6. CYMBALTA [Concomitant]
     Dosage: 60 MG

REACTIONS (1)
  - OEDEMA PERIPHERAL [None]
